FAERS Safety Report 7893805-6 (Version None)
Quarter: 2011Q4

REPORT INFORMATION
  Report Type: 
  Country: None (occurrence: None)
  Receive Date: 20111104
  Receipt Date: 20111028
  Transmission Date: 20120403
  Serious: Yes (Hospitalization)
  Sender: FDA-Public Use
  Company Number: BE-ABBOTT-11P-013-0870443-00

PATIENT
  Sex: Female

DRUGS (2)
  1. HUMIRA [Suspect]
     Indication: PSORIATIC ARTHROPATHY
     Dates: start: 20091123
  2. MEDROL [Concomitant]
     Indication: PRODUCT USED FOR UNKNOWN INDICATION

REACTIONS (5)
  - RED BLOOD CELL SEDIMENTATION RATE INCREASED [None]
  - MICROCYTIC ANAEMIA [None]
  - INFLAMMATORY MARKER INCREASED [None]
  - IRON DEFICIENCY [None]
  - HEPATIC FUNCTION ABNORMAL [None]
